FAERS Safety Report 6408083-4 (Version None)
Quarter: 2009Q4

REPORT INFORMATION
  Report Type: 
  Country: None (occurrence: None)
  Receive Date: 20091016
  Receipt Date: 20091005
  Transmission Date: 20100525
  Serious: Yes (Other)
  Sender: FDA-Public Use
  Company Number: 2009US003691

PATIENT
  Sex: Female
  Weight: 2.7 kg

DRUGS (6)
  1. PROGRAF [Suspect]
     Indication: DRUG EXPOSURE DURING PREGNANCY
     Dosage: 4 MG, BID, ORAL; 11 MG, UID/QD, ORAL
     Route: 048
     Dates: start: 20070101, end: 20070101
  2. PROGRAF [Suspect]
     Indication: DRUG EXPOSURE DURING PREGNANCY
     Dosage: 4 MG, BID, ORAL; 11 MG, UID/QD, ORAL
     Route: 048
     Dates: end: 20070101
  3. ACTIGALL [Concomitant]
  4. EPIVIR [Concomitant]
  5. VITAMINS NOS (VITAMINS NOS) [Concomitant]
  6. ANTIBIOTICS [Concomitant]

REACTIONS (4)
  - CAESAREAN SECTION [None]
  - DRUG EXPOSURE DURING PREGNANCY [None]
  - PREGNANCY [None]
  - PYLORIC STENOSIS [None]
